FAERS Safety Report 4570740-2 (Version None)
Quarter: 2005Q1

REPORT INFORMATION
  Report Type: 
  Country: None (occurrence: None)
  Receive Date: 20050204
  Receipt Date: 20050131
  Transmission Date: 20050727
  Serious: Yes (Hospitalization)
  Sender: FDA-Public Use
  Company Number: US-BRISTOL-MYERS SQUIBB COMPANY-12842373

PATIENT
  Age: 73 Year
  Sex: Male
  Weight: 131 kg

DRUGS (4)
  1. CETUXIMAB [Suspect]
     Indication: NON-SMALL CELL LUNG CANCER
     Dosage: INITIAL TX DATE: 12-APR-04. DOSAGE WAS TOTAL DOSE ADM THIS COURSE.  PT HAD REC'D 4 COURSES.
     Route: 042
     Dates: start: 20040706
  2. CARBOPLATIN [Suspect]
     Indication: NON-SMALL CELL LUNG CANCER
     Dosage: INITIAL TX DATE: 12-APR-04. DOSAGE WAS THE TOTAL DOSE ADM THIS COURSE. PT HAD REC'D 4 COURSES.
     Route: 042
     Dates: start: 20040706
  3. PACLITAXEL [Suspect]
     Indication: NON-SMALL CELL LUNG CANCER
     Dosage: INITIAL TX DATE: 12-APR-04. DOSAGE WAS TOTAL DOSE ADM THIS COURSE. PT HAD REC'D 4 COURSES
     Route: 042
     Dates: start: 20040706
  4. RADIATION THERAPY [Suspect]
     Indication: NON-SMALL CELL LUNG CANCER
     Dosage: TOTAL DOSE TO DATE: 6300 CGY. # OF FRACTIONS: 35.  # OF ELASPSED DAYS: 53.
     Dates: start: 20040610

REACTIONS (7)
  - BONE MARROW DEPRESSION [None]
  - DEHYDRATION [None]
  - FATIGUE [None]
  - MUCOSAL INFLAMMATION [None]
  - NEUTROPHIL COUNT DECREASED [None]
  - OESOPHAGITIS [None]
  - SYNCOPE [None]
